FAERS Safety Report 4751768-6 (Version None)
Quarter: 2005Q3

REPORT INFORMATION
  Report Type: 
  Country: None (occurrence: None)
  Receive Date: 20050823
  Receipt Date: 20050823
  Transmission Date: 20060218
  Serious: Yes (Other)
  Sender: FDA-Public Use
  Company Number: None

PATIENT
  Age: 70 Year
  Sex: Female
  Weight: 58.9676 kg

DRUGS (4)
  1. LIPITOR [Suspect]
     Indication: BLOOD CHOLESTEROL INCREASED
     Dosage: 10 MG ONCE A DAY
     Dates: start: 20050527, end: 20050612
  2. NORVASC [Concomitant]
  3. ACTONEL [Concomitant]
  4. VITAMINS [Concomitant]

REACTIONS (3)
  - AMNESIA [None]
  - BELLIGERENCE [None]
  - REFUSAL OF TREATMENT BY PATIENT [None]
